FAERS Safety Report 16651129 (Version 1)
Quarter: 2019Q3

REPORT INFORMATION
  Report Type: Spontaneous
  Country: US (occurrence: US)
  Receive Date: 20190730
  Receipt Date: 20190730
  Transmission Date: 20191004
  Serious: Yes (Other)
  Sender: FDA-Public Use
  Company Number: None

PATIENT
  Age: 34 Year
  Sex: Male

DRUGS (2)
  1. BUPRENORPHINEINALOXONE ` [Suspect]
     Active Substance: BUPRENORPHINE\NALOXONE
     Indication: DRUG DEPENDENCE
     Route: 048
     Dates: start: 20190619, end: 20190729
  2. BUPRENORPHINEINALOXONE 8-2MG TABS [Suspect]
     Active Substance: BUPRENORPHINE\NALOXONE
     Dates: start: 20190619, end: 20190730

REACTIONS (2)
  - Product solubility abnormal [None]
  - Drug ineffective [None]

NARRATIVE: CASE EVENT DATE: 20190729
